FAERS Safety Report 9176644 (Version 3)
Quarter: 2013Q2

REPORT INFORMATION
  Report Type: Report from Study
  Country: US (occurrence: US)
  Receive Date: 20130321
  Receipt Date: 20130510
  Transmission Date: 20140414
  Serious: Yes (Other)
  Sender: FDA-Public Use
  Company Number: US-JNJFOC-20130309549

PATIENT
  Age: 52 Year
  Sex: Male
  Weight: 86.18 kg

DRUGS (6)
  1. REMICADE [Suspect]
     Indication: COLITIS ULCERATIVE
     Route: 042
     Dates: start: 20120806, end: 20130115
  2. LEVOTHYROXINE [Concomitant]
     Indication: THYROID DISORDER
     Route: 048
     Dates: start: 201301
  3. LEVOTHYROXINE [Concomitant]
     Indication: THYROID DISORDER
     Dosage: 100 CG
     Route: 048
     Dates: start: 2006
  4. LEVOTHYROXINE [Concomitant]
     Indication: THYROID DISORDER
     Route: 048
  5. OMEPRAZOLE [Concomitant]
     Indication: DYSPEPSIA
     Route: 065
     Dates: start: 2006
  6. MELATONIN [Concomitant]
     Indication: SLEEP DISORDER
     Route: 065
     Dates: start: 201209

REACTIONS (3)
  - Drug hypersensitivity [Recovered/Resolved]
  - Hypothyroidism [Unknown]
  - Drug specific antibody present [Unknown]
